FAERS Safety Report 6639795-5 (Version None)
Quarter: 2010Q1

REPORT INFORMATION
  Report Type: 
  Country: None (occurrence: None)
  Receive Date: 20100318
  Receipt Date: 20100310
  Transmission Date: 20100710
  Serious: Yes (Other)
  Sender: FDA-Public Use
  Company Number: GB-BRISTOL-MYERS SQUIBB COMPANY-15014939

PATIENT
  Sex: Male

DRUGS (1)
  1. SPRYCEL [Suspect]
     Indication: ACUTE LYMPHOCYTIC LEUKAEMIA
     Dosage: RE-CHALLENGE WITH DASATINIB AT A REDUCED DOSE AND WITH A ONCE DAILY SCHEDULE

REACTIONS (2)
  - ABASIA [None]
  - MYOSITIS [None]
